FAERS Safety Report 12430848 (Version 1)
Quarter: 2016Q2

REPORT INFORMATION
  Report Type: Spontaneous
  Country: US (occurrence: US)
  Receive Date: 20160602
  Receipt Date: 20160602
  Transmission Date: 20160815
  Serious: No
  Sender: FDA-Public Use
  Company Number: US-AMGEN-USASP2016069962

PATIENT
  Age: 73 Year
  Sex: Male

DRUGS (2)
  1. PREDNISONE. [Concomitant]
     Active Substance: PREDNISONE
     Dosage: UNK
     Dates: start: 2010
  2. ENBREL [Suspect]
     Active Substance: ETANERCEPT
     Indication: AUTOIMMUNE DISORDER
     Dosage: 50 MG, UNK
     Route: 065
     Dates: start: 201604

REACTIONS (9)
  - Pain in extremity [Unknown]
  - Oedema peripheral [Unknown]
  - Injection site erythema [Recovered/Resolved]
  - Off label use [Unknown]
  - Injection site swelling [Unknown]
  - Injection site rash [Recovered/Resolved]
  - Injection site inflammation [Unknown]
  - Therapeutic response unexpected [Unknown]
  - Injection site induration [Unknown]

NARRATIVE: CASE EVENT DATE: 2016
